FAERS Safety Report 5063861-1 (Version None)
Quarter: 2006Q3

REPORT INFORMATION
  Report Type: 
  Country: None (occurrence: None)
  Receive Date: 20060724
  Receipt Date: 20060710
  Transmission Date: 20061208
  Serious: Yes (Death, Other)
  Sender: FDA-Public Use
  Company Number: 2005060701

PATIENT
  Age: 73 Year
  Sex: Male
  Weight: 82.5547 kg

DRUGS (3)
  1. CELEBREX [Suspect]
     Indication: ARTHRITIS
     Dosage: 200 MG, 3 IN 1 D
     Dates: start: 20010101, end: 20040407
  2. CELEBREX [Suspect]
     Indication: PAIN
     Dosage: 200 MG, 3 IN 1 D
     Dates: start: 20010101, end: 20040407
  3. ASPIRIN [Concomitant]

REACTIONS (4)
  - CEREBROVASCULAR ACCIDENT [None]
  - MYOCARDIAL INFARCTION [None]
  - STENT PLACEMENT [None]
  - VASCULAR BYPASS GRAFT [None]
